FAERS Safety Report 19060595 (Version 3)
Quarter: 2022Q3

REPORT INFORMATION
  Report Type: Spontaneous
  Country: MY (occurrence: MY)
  Receive Date: 20210326
  Receipt Date: 20220822
  Transmission Date: 20221027
  Serious: Yes (Hospitalization, Other)
  Sender: FDA-Public Use
  Company Number: None

PATIENT
  Age: 54 Year
  Sex: Male

DRUGS (8)
  1. ALBUTEROL [Suspect]
     Active Substance: ALBUTEROL
     Indication: Asthma
     Dosage: 2 DOSAGE FORM, PRN (AS NECESSARY), 2 PUFFS
     Route: 055
     Dates: start: 202010, end: 202010
  2. ALBUTEROL [Suspect]
     Active Substance: ALBUTEROL
     Dosage: 1600 MICROGRAM, METERED-DOSE INHALER
     Route: 055
     Dates: start: 202010, end: 202010
  3. ALBUTEROL [Suspect]
     Active Substance: ALBUTEROL
     Dosage: 8 DOSAGE FORM, BID, 8 PUFFS AND ANOTHER 8 PUFFS WITHIN 15 MINS TIME GAP
     Route: 055
     Dates: start: 20201028, end: 20201028
  4. ALBUTEROL [Suspect]
     Active Substance: ALBUTEROL
     Dosage: 4 DOSAGE FORM, QID, 4 PUFFS MDI FOR 3 DAYS
     Route: 055
     Dates: start: 20201029, end: 20201029
  5. ALBUTEROL [Suspect]
     Active Substance: ALBUTEROL
     Dosage: 2 DOSAGE FORM, QID, 2 PUFFS 6 HOURLY MDI
     Route: 055
     Dates: start: 20201030, end: 20201030
  6. BUDESONIDE [Concomitant]
     Active Substance: BUDESONIDE
     Indication: Asthma
     Dosage: 2 DOSAGE FORM, BID, 2 PUFFS, METERED-DOSE INHALER
     Route: 055
  7. GLICLAZIDE [Concomitant]
     Active Substance: GLICLAZIDE
     Indication: Type 2 diabetes mellitus
     Dosage: 40 MILLIGRAM, QD
     Route: 065
  8. METFORMIN [Concomitant]
     Active Substance: METFORMIN HYDROCHLORIDE
     Indication: Type 2 diabetes mellitus
     Dosage: 1 GRAM, BID
     Route: 065

REACTIONS (4)
  - Paroxysmal sympathetic hyperactivity [Recovered/Resolved]
  - Dyskinesia [Recovered/Resolved]
  - Asthma [Recovered/Resolved]
  - Overdose [Unknown]

NARRATIVE: CASE EVENT DATE: 20201028
